FAERS Safety Report 23788074 (Version 1)
Quarter: 2024Q2

REPORT INFORMATION
  Report Type: Spontaneous
  Country: US (occurrence: US)
  Receive Date: 20240426
  Receipt Date: 20240426
  Transmission Date: 20240716
  Serious: No
  Sender: FDA-Public Use
  Company Number: US-TARO PHARMACEUTICALS USA INC.-2023TAR00377

PATIENT

DRUGS (3)
  1. FLUOROURACIL [Suspect]
     Active Substance: FLUOROURACIL
     Indication: Skin papilloma
     Dosage: UNK, OD, TOPICAL TO WART ON BOTTOM OF FOOT, APPLY TO AFFECTED AREA
     Route: 061
     Dates: start: 202301
  2. FLUOROURACIL [Suspect]
     Active Substance: FLUOROURACIL
     Indication: Rash
     Dosage: UNK, BID, TOPICAL TO SKIN ON NECK
     Route: 061
     Dates: start: 20230305
  3. HYDROCORTISONE [Concomitant]
     Active Substance: HYDROCORTISONE
     Indication: Rash
     Dosage: UNK
     Route: 065

REACTIONS (5)
  - Rash [Recovering/Resolving]
  - Application site erythema [Recovering/Resolving]
  - Accidental exposure to product [Unknown]
  - Off label use [Unknown]
  - Discomfort [Recovering/Resolving]

NARRATIVE: CASE EVENT DATE: 20230101
